FAERS Safety Report 5331225-9 (Version None)
Quarter: 2007Q2

REPORT INFORMATION
  Report Type: 
  Country: None (occurrence: None)
  Receive Date: 20070522
  Receipt Date: 20070514
  Transmission Date: 20071010
  Serious: Yes (Hospitalization, Other)
  Sender: FDA-Public Use
  Company Number: US-MERCK-0608USA02223

PATIENT
  Age: 78 Year
  Sex: Female
  Weight: 58 kg

DRUGS (20)
  1. FOSAMAX [Suspect]
     Indication: BONE DENSITY DECREASED
     Route: 048
     Dates: end: 20050101
  2. FOSAMAX [Suspect]
     Route: 048
     Dates: start: 19980201
  3. FOSAMAX [Suspect]
     Indication: OSTEOPOROSIS
     Route: 048
     Dates: end: 20050101
  4. FOSAMAX [Suspect]
     Route: 048
     Dates: start: 19980201
  5. PLAVIX [Concomitant]
     Route: 065
  6. PLENDIL [Concomitant]
     Route: 048
  7. CALCIUM (UNSPECIFIED) [Concomitant]
     Route: 065
  8. ASCORBIC ACID [Concomitant]
     Route: 065
  9. GLUCOSAMINE [Concomitant]
     Route: 065
  10. VITAMIN E [Concomitant]
     Route: 065
  11. ISOSORBIDE [Concomitant]
     Route: 065
  12. ZOCOR [Concomitant]
     Route: 048
  13. ZIAC [Concomitant]
     Route: 065
  14. [THERAPY UNSPECIFIED] [Concomitant]
     Route: 065
  15. ASPIRIN [Concomitant]
     Route: 065
  16. ZINC (UNSPECIFIED) [Concomitant]
     Route: 065
  17. ICAPS [Concomitant]
     Route: 065
  18. CYANOCOBALAMIN [Concomitant]
     Route: 065
  19. FOLIC ACID [Concomitant]
     Route: 065
  20. CENTRUM SILVER [Concomitant]
     Route: 065

REACTIONS (7)
  - ANXIETY [None]
  - CORONARY ARTERY OCCLUSION [None]
  - DEPRESSION [None]
  - OSTEONECROSIS [None]
  - RIB FRACTURE [None]
  - ROAD TRAFFIC ACCIDENT [None]
  - VERTEBRAL INJURY [None]
